FAERS Safety Report 13794434 (Version 1)
Quarter: 2017Q3

REPORT INFORMATION
  Report Type: Spontaneous
  Country: US (occurrence: US)
  Receive Date: 20170726
  Receipt Date: 20170726
  Transmission Date: 20171127
  Serious: No
  Sender: FDA-Public Use
  Company Number: US-PFIZER INC-2017320380

PATIENT
  Sex: Female

DRUGS (1)
  1. LYRICA [Suspect]
     Active Substance: PREGABALIN
     Dosage: 100 MG, 3X/DAY

REACTIONS (6)
  - Lethargy [Unknown]
  - Speech disorder [Unknown]
  - Vomiting [Unknown]
  - Nervous system disorder [Unknown]
  - Mobility decreased [Unknown]
  - Abdominal pain upper [Unknown]
